FAERS Safety Report 19392740 (Version 8)
Quarter: 2022Q2

REPORT INFORMATION
  Report Type: Report from Study
  Country: JP (occurrence: JP)
  Receive Date: 20210609
  Receipt Date: 20220523
  Transmission Date: 20220721
  Serious: Yes (Other)
  Sender: FDA-Public Use
  Company Number: JP-NOVARTISPH-NVSJ2021JP008083

PATIENT
  Age: 11 Month
  Sex: Male
  Weight: 9.1 kg

DRUGS (4)
  1. ZOLGENSMA [Suspect]
     Active Substance: ONASEMNOGENE ABEPARVOVEC-XIOI
     Indication: Spinal muscular atrophy
     Dosage: 52.3 ML
     Route: 042
     Dates: start: 20210521, end: 20210521
  2. PREDONINE [Concomitant]
     Active Substance: PREDNISOLONE
     Indication: Product used for unknown indication
     Dosage: 10 MG
     Route: 048
     Dates: start: 20210520, end: 20210617
  3. PREDONINE [Concomitant]
     Active Substance: PREDNISOLONE
     Dosage: 5 MG
     Route: 048
     Dates: start: 20210618, end: 20210708
  4. PREDONINE [Concomitant]
     Active Substance: PREDNISOLONE
     Dosage: 2.5 MG
     Route: 048
     Dates: start: 20210709, end: 20210720

REACTIONS (5)
  - Hepatic function abnormal [Recovering/Resolving]
  - Aspartate aminotransferase increased [Recovered/Resolved]
  - Alanine aminotransferase increased [Recovered/Resolved]
  - Platelet count decreased [Recovered/Resolved]
  - Pyrexia [Recovered/Resolved]

NARRATIVE: CASE EVENT DATE: 20210523
